FAERS Safety Report 11885127 (Version 2)
Quarter: 2016Q1

REPORT INFORMATION
  Report Type: Report from Study
  Country: US (occurrence: US)
  Receive Date: 20160104
  Receipt Date: 20160111
  Transmission Date: 20160526
  Serious: No
  Sender: FDA-Public Use
  Company Number: US-ASTRAZENECA-2015SE78884

PATIENT
  Sex: Male

DRUGS (1)
  1. BRILINTA [Suspect]
     Active Substance: TICAGRELOR
     Indication: ACUTE CORONARY SYNDROME
     Route: 048

REACTIONS (5)
  - Hypertriglyceridaemia [Unknown]
  - Dyspnoea [Unknown]
  - Cardiac disorder [Unknown]
  - Arthritis [Recovered/Resolved]
  - Asthenia [Unknown]
